FAERS Safety Report 6249851-1 (Version None)
Quarter: 2009Q2

REPORT INFORMATION
  Report Type: 
  Country: None (occurrence: None)
  Receive Date: 20090624
  Receipt Date: 20090609
  Transmission Date: 20091009
  Serious: Yes (Hospitalization)
  Sender: FDA-Public Use
  Company Number: 2009001752

PATIENT
  Age: 53 Year
  Sex: Female

DRUGS (2)
  1. ERLOTINIB(ERLOTINIB)(TABLET)(ERLOTINIB) [Suspect]
     Indication: PANCREATIC CARCINOMA METASTATIC
     Dosage: (100 MG,QD),ORAL
     Route: 048
     Dates: start: 20090506, end: 20090530
  2. GEMCITABINE [Suspect]
     Indication: PANCREATIC CARCINOMA METASTATIC
     Dosage: (1400 MG,QW), INTRAVENOUS
     Route: 042
     Dates: start: 20090506, end: 20090603

REACTIONS (4)
  - ANAEMIA [None]
  - ASTHENIA [None]
  - DEHYDRATION [None]
  - NAUSEA [None]
